FAERS Safety Report 9934890 (Version 1)
Quarter: 2014Q1

REPORT INFORMATION
  Report Type: Spontaneous
  Country: KR (occurrence: KR)
  Receive Date: 20140228
  Receipt Date: 20140228
  Transmission Date: 20141002
  Serious: Yes (Death, Other)
  Sender: FDA-Public Use
  Company Number: PHHY2014KR024784

PATIENT
  Age: 29 Day
  Sex: Female
  Weight: 3.5 kg

DRUGS (3)
  1. CICLOSPORIN [Suspect]
     Indication: CHEMOTHERAPY
  2. DEXAMETHASONE [Suspect]
  3. ETOPOSIDE [Suspect]

REACTIONS (4)
  - Multi-organ failure [Fatal]
  - Hypotension [Unknown]
  - Renal failure [Unknown]
  - Drug ineffective [Unknown]
